FAERS Safety Report 7824559-7 (Version None)
Quarter: 2011Q4

REPORT INFORMATION
  Report Type: 
  Country: None (occurrence: None)
  Receive Date: 20111019
  Receipt Date: 20111005
  Transmission Date: 20120403
  Serious: Yes (Hospitalization)
  Sender: FDA-Public Use
  Company Number: US-ELI_LILLY_AND_COMPANY-US201109000325

PATIENT
  Age: 62 Year
  Sex: Female

DRUGS (6)
  1. SYNTHROID [Concomitant]
  2. CORTICOSTEROIDS [Concomitant]
  3. IMMUNOSUPPRESSANTS [Concomitant]
  4. AZOR [Concomitant]
     Indication: HYPERTENSION
  5. ANTIBIOTICS [Concomitant]
  6. FORTEO [Suspect]
     Indication: OSTEOPOROSIS
     Dosage: 20 UG, QD
     Dates: end: 20110824

REACTIONS (1)
  - CLOSTRIDIUM DIFFICILE COLITIS [None]
